FAERS Safety Report 20221436 (Version 12)
Quarter: 2025Q4

REPORT INFORMATION
  Report Type: Spontaneous
  Country: EU (occurrence: EU)
  Receive Date: 20211223
  Receipt Date: 20251201
  Transmission Date: 20260117
  Serious: Yes (Life-Threatening, Hospitalization, Disabling, Other)
  Sender: SANOFI AVENTIS
  Company Number: EU-SA-SAC20211207000263

PATIENT
  Age: 83 Year
  Sex: Female
  Weight: 91 kg

DRUGS (36)
  1. METOPROLOL [Suspect]
     Active Substance: METOPROLOL
     Indication: Hypertension
     Dosage: 50 MG, BID
     Route: 048
  2. OMEPRAZOLE [Interacting]
     Active Substance: OMEPRAZOLE
     Indication: Product used for unknown indication
     Dosage: 100 MG, BID
     Route: 048
  3. OMEPRAZOLE [Interacting]
     Active Substance: OMEPRAZOLE
     Dosage: 40 MG, BID
     Route: 048
  4. OMEPRAZOLE [Interacting]
     Active Substance: OMEPRAZOLE
     Dosage: 20 MG, BID
  5. RAMIPRIL [Interacting]
     Active Substance: RAMIPRIL
     Indication: Cardiac failure
     Dosage: 5 MG, QD/1-0-0
     Route: 048
  6. RAMIPRIL [Interacting]
     Active Substance: RAMIPRIL
     Dosage: 5 MG, BID
     Route: 048
  7. CITALOPRAM [Suspect]
     Active Substance: CITALOPRAM
     Indication: Depression
     Dosage: 40 MG, QD/1-0-0
  8. HYDROXYZINE [Interacting]
     Active Substance: HYDROXYZINE HYDROCHLORIDE
     Indication: Product used for unknown indication
     Dosage: 25 MG, PRN  AS NEEDED
     Route: 048
  9. HYDROXYZINE [Interacting]
     Active Substance: HYDROXYZINE HYDROCHLORIDE
     Dosage: 40 MG
     Route: 048
  10. ZOLPIDEM TARTRATE [Suspect]
     Active Substance: ZOLPIDEM TARTRATE
     Indication: Depression
     Dosage: 10 MG/KG, QD
     Route: 048
  11. ZOLPIDEM TARTRATE [Suspect]
     Active Substance: ZOLPIDEM TARTRATE
  12. ALPRAZOLAM [Interacting]
     Active Substance: ALPRAZOLAM
     Indication: Depression
     Dosage: 0.5 MG, BID
     Route: 048
  13. ISOSORBIDE MONONITRATE [Suspect]
     Active Substance: ISOSORBIDE MONONITRATE
     Indication: Coronary artery disease
     Dosage: 50 MG, PRN
     Route: 048
  14. ISOSORBIDE MONONITRATE [Suspect]
     Active Substance: ISOSORBIDE MONONITRATE
     Indication: Product used for unknown indication
  15. ALLOPURINOL [Interacting]
     Active Substance: ALLOPURINOL
     Indication: Product used for unknown indication
     Dosage: 100 MG, QD/1-0-0
     Route: 048
  16. ATORVASTATIN [Interacting]
     Active Substance: ATORVASTATIN
     Dosage: 20 MG, QD
     Route: 048
  17. ATORVASTATIN [Interacting]
     Active Substance: ATORVASTATIN
     Dosage: 20 MG, QD
  18. FUROSEMIDE [Suspect]
     Active Substance: FUROSEMIDE
     Dosage: 40 MG, QOD
     Route: 048
  19. SPIRONOLACTONE [Interacting]
     Active Substance: SPIRONOLACTONE
     Indication: Product used for unknown indication
     Dosage: 100 MG, QD
     Route: 048
  20. SPIRONOLACTONE [Interacting]
     Active Substance: SPIRONOLACTONE
     Dosage: 100 MG, QD/0-1-0
  21. HYDROCHLOROTHIAZIDE [Suspect]
     Active Substance: HYDROCHLOROTHIAZIDE
     Dosage: 25 MG, QD/1-0-0
     Route: 048
  22. LEVOTHYROXINE SODIUM [Suspect]
     Active Substance: LEVOTHYROXINE SODIUM
     Dosage: 100 UG, QD/1-0-0
  23. GLICLAZIDE [Suspect]
     Active Substance: GLICLAZIDE
     Indication: Type 2 diabetes mellitus
     Dosage: 60 MG, TID/1-1-1
     Route: 048
  24. BETAHISTINE [Suspect]
     Active Substance: BETAHISTINE
     Dosage: 24 MG, QD/01-1-0
     Route: 048
  25. TRAMADOL HYDROCHLORIDE [Interacting]
     Active Substance: TRAMADOL HYDROCHLORIDE
     Dosage: 50 MG
     Route: 048
  26. TRAMADOL HYDROCHLORIDE [Interacting]
     Active Substance: TRAMADOL HYDROCHLORIDE
     Dosage: 100 MG, PRN
     Route: 048
  27. ACETAMINOPHEN [Interacting]
     Active Substance: ACETAMINOPHEN
     Dosage: 500 MG, QD
     Route: 048
  28. ACETAMINOPHEN [Interacting]
     Active Substance: ACETAMINOPHEN
     Dosage: 500 MG, BID
     Route: 048
  29. ALBUTEROL SULFATE [Interacting]
     Active Substance: ALBUTEROL SULFATE
     Indication: Product used for unknown indication
     Dosage: 100 UG, PRN
  30. METOCLOPRAMIDE HYDROCHLORIDE [Interacting]
     Active Substance: METOCLOPRAMIDE HYDROCHLORIDE
     Indication: Constipation
     Dosage: 10 MG, PRN
  31. POTASSIUM CHLORIDE [Suspect]
     Active Substance: POTASSIUM CHLORIDE
     Dosage: 391 MG, QOD
  32. DABIGATRAN [Interacting]
     Active Substance: DABIGATRAN
     Dosage: 110 MG, BID
  33. DEXTROSE\NIKETHAMIDE [Interacting]
     Active Substance: DEXTROSE\NIKETHAMIDE
     Dosage: UNK
  34. LAN DI [Concomitant]
     Indication: Hypertension
     Dosage: 1 DOSAGE FORM, QD (AMLODIPINE BESILATE: 50.0MG )
     Route: 048
  35. METFORMIN [Concomitant]
     Active Substance: METFORMIN HYDROCHLORIDE
     Indication: Type 2 diabetes mellitus
     Dosage: UNK
  36. TORSEMIDE [Concomitant]
     Active Substance: TORSEMIDE
     Dosage: 5 MG, QD

REACTIONS (9)
  - Fall [Recovering/Resolving]
  - Dementia [Unknown]
  - Parkinsonism [Recovering/Resolving]
  - Mobility decreased [Recovering/Resolving]
  - Musculoskeletal stiffness [Recovering/Resolving]
  - Osteoporosis [Unknown]
  - Hypoglycaemia [Unknown]
  - Hypotonia [Recovering/Resolving]
  - Multiple drug therapy [Recovering/Resolving]

NARRATIVE: CASE EVENT DATE: 20210101
